FAERS Safety Report 16021588 (Version 1)
Quarter: 2019Q1

REPORT INFORMATION
  Report Type: Spontaneous
  Country: FR (occurrence: FR)
  Receive Date: 20190301
  Receipt Date: 20190301
  Transmission Date: 20190418
  Serious: Yes (Other)
  Sender: FDA-Public Use
  Company Number: FR-AUROBINDO-AUR-APL-2019-009141

PATIENT

DRUGS (7)
  1. PRAVASTATIN. [Concomitant]
     Active Substance: PRAVASTATIN
     Indication: HYPERCHOLESTEROLAEMIA
     Dosage: 20 MILLIGRAM, ONCE A DAY
     Route: 048
     Dates: start: 2017
  2. COLCHIMAX [Concomitant]
     Indication: GOUT
     Dosage: 1 MILLIGRAM, ONCE A DAY
     Route: 048
     Dates: start: 2017
  3. METFORMINE ARROW [Concomitant]
     Active Substance: METFORMIN HYDROCHLORIDE
     Indication: DIABETES MELLITUS
     Dosage: 2000 MILLIGRAM, ONCE A DAY, 1-0-1
     Route: 048
     Dates: start: 2017
  4. AMOXICILLINE ARROW [Concomitant]
     Active Substance: AMOXICILLIN
     Indication: PRODUCT USED FOR UNKNOWN INDICATION
     Dosage: 3 GRAM, ONCE A DAY, 1-1-1
     Route: 048
     Dates: start: 20190117, end: 20190123
  5. RAMIPRIL ARROW [Suspect]
     Active Substance: RAMIPRIL
     Indication: HYPERTENSION
     Dosage: 5 MILLIGRAM, ONCE A DAY
     Route: 048
     Dates: start: 20190125, end: 20190125
  6. BISOPROLOL SANDOZ [Concomitant]
     Active Substance: BISOPROLOL
     Indication: HYPERTENSION
     Dosage: 7.5 MILLIGRAM, ONCE A DAY, 1-0-0
     Route: 048
     Dates: start: 2017
  7. KARDEGIC [Concomitant]
     Active Substance: ASPIRIN DL-LYSINE
     Indication: ISCHAEMIC HEART DISEASE PROPHYLAXIS
     Dosage: 160 MILLIGRAM, ONCE A DAY
     Route: 048
     Dates: start: 2017

REACTIONS (2)
  - Angioedema [Recovered/Resolved]
  - Drug level changed [Recovered/Resolved]

NARRATIVE: CASE EVENT DATE: 20190125
